FAERS Safety Report 10871520 (Version 1)
Quarter: 2015Q1

REPORT INFORMATION
  Report Type: Spontaneous
  Country: US (occurrence: US)
  Receive Date: 20150226
  Receipt Date: 20150226
  Transmission Date: 20150721
  Serious: No
  Sender: FDA-Public Use
  Company Number: US-MYLANLABS-2014S1006697

PATIENT
  Sex: Male
  Weight: 127.01 kg

DRUGS (13)
  1. GLUCOSAMINE [Concomitant]
     Active Substance: GLUCOSAMINE
     Dosage: 1000 MG,QD
  2. BENICAR [Concomitant]
     Active Substance: OLMESARTAN MEDOXOMIL
     Dosage: UNK
     Route: 048
  3. ASPIRIN. [Concomitant]
     Active Substance: ASPIRIN
     Dosage: 81 MG,QD
     Route: 048
  4. GLYBURIDE. [Concomitant]
     Active Substance: GLYBURIDE
     Dosage: 5 MG,BID
     Route: 048
  5. METFORMIN HYDROCHLORIDE TABLETS USP [Suspect]
     Active Substance: METFORMIN HYDROCHLORIDE
     Indication: DIABETES MELLITUS
     Dosage: 1000 MG,BID
     Route: 048
     Dates: end: 201312
  6. TAMSULOSIN [Concomitant]
     Active Substance: TAMSULOSIN
     Dosage: .4 MG,QD
     Route: 048
  7. CENTRUM SILVER [Concomitant]
     Active Substance: VITAMINS
     Dosage: UNK UNK,QD
     Route: 048
  8. VITAMIN B12 [Concomitant]
     Active Substance: CYANOCOBALAMIN
     Dosage: 1000 ?G,QD
     Route: 048
  9. TESTOSTERONE. [Concomitant]
     Active Substance: TESTOSTERONE
     Dosage: 1 %,QD
  10. NEBIVOLOL [Concomitant]
     Active Substance: NEBIVOLOL
     Dosage: 5 MG,QD
     Route: 048
  11. LOVASTATIN. [Concomitant]
     Active Substance: LOVASTATIN
     Dosage: 80 MG,QD
     Route: 048
  12. OMEPRAZOLE. [Concomitant]
     Active Substance: OMEPRAZOLE
     Dosage: 40 MG,BID
     Route: 048
  13. SAW PALMETTO [Concomitant]
     Active Substance: SAW PALMETTO
     Dosage: 450 MG,BID

REACTIONS (1)
  - Diarrhoea [Recovered/Resolved]
